FAERS Safety Report 18664751 (Version 1)
Quarter: 2020Q4

REPORT INFORMATION
  Report Type: Report from Study
  Country: US (occurrence: US)
  Receive Date: 20201225
  Receipt Date: 20201225
  Transmission Date: 20210114
  Serious: Yes (Other)
  Sender: FDA-Public Use
  Company Number: US-EMD SERONO-9208306

PATIENT
  Age: 63 Year
  Sex: Female

DRUGS (3)
  1. BACLOFEN. [Concomitant]
     Active Substance: BACLOFEN
     Indication: MUSCLE SPASMS
     Dosage: SHE WAS ORDERED 2 TABLETS AT BEDTIME AND HAD AN AS NEEDED DOSE OF 1 TABLET DAILY.
  2. MAVENCLAD [Suspect]
     Active Substance: CLADRIBINE
     Indication: MULTIPLE SCLEROSIS
     Dosage: YEAR ONE MONTH ONE THERAPY
     Route: 048
     Dates: start: 20200115, end: 20200119
  3. MAVENCLAD [Suspect]
     Active Substance: CLADRIBINE
     Dosage: YEAR ONE MONTH TWO THERAPY: TWO TABLETS ON DAYS 1 AND 2 AND ONE TABLET ON DAYS 3 TO 5.
     Route: 048
     Dates: start: 20200223, end: 20200227

REACTIONS (5)
  - Ear infection [Unknown]
  - Diarrhoea [Not Recovered/Not Resolved]
  - Tympanic membrane perforation [Unknown]
  - Tooth infection [Recovering/Resolving]
  - Osteomyelitis [Recovering/Resolving]

NARRATIVE: CASE EVENT DATE: 2020
